FAERS Safety Report 9336735 (Version 1)
Quarter: 2013Q2

REPORT INFORMATION
  Report Type: Spontaneous
  Country: DK (occurrence: FR)
  Receive Date: 20130607
  Receipt Date: 20130607
  Transmission Date: 20140414
  Serious: Yes (Life-Threatening)
  Sender: FDA-Public Use
  Company Number: FR-FRI-1000045735

PATIENT
  Age: 25 Year
  Sex: Male

DRUGS (5)
  1. ESCITALOPRAM [Suspect]
     Indication: DEPRESSION
     Route: 048
     Dates: start: 201305
  2. ESCITALOPRAM [Suspect]
     Dosage: OVERDOSE OF AN UNKNOWN DOSE
     Route: 048
     Dates: start: 20130505
  3. IMOVANE [Suspect]
     Indication: SLEEP DISORDER
     Route: 048
     Dates: start: 201305
  4. IMOVANE [Suspect]
     Dosage: OVERDOSE OF AN UNKNOWN DOSE
     Route: 048
     Dates: start: 20130505
  5. TERCIAN [Concomitant]
     Dates: start: 201305

REACTIONS (2)
  - Coma [Recovered/Resolved]
  - Overdose [Recovered/Resolved]
